FAERS Safety Report 7533037-4 (Version None)
Quarter: 2011Q2

REPORT INFORMATION
  Report Type: 
  Country: None (occurrence: None)
  Receive Date: 20110608
  Receipt Date: 20110524
  Transmission Date: 20111010
  Serious: Yes (Hospitalization)
  Sender: FDA-Public Use
  Company Number: US-DENTSPLY-2011-0035-EUR

PATIENT
  Age: 55 Year
  Sex: Male
  Weight: 136 kg

DRUGS (1)
  1. ORAQIX [Suspect]
     Dates: end: 20110323

REACTIONS (7)
  - LIP SWELLING [None]
  - BLOOD PRESSURE INCREASED [None]
  - COUGH [None]
  - SPEECH DISORDER [None]
  - SWELLING FACE [None]
  - LOCAL SWELLING [None]
  - DYSPNOEA [None]
